FAERS Safety Report 16817121 (Version 1)
Quarter: 2019Q4

REPORT INFORMATION
  Report Type: Spontaneous
  Country: US (occurrence: US)
  Receive Date: 20190917
  Receipt Date: 20190917
  Transmission Date: 20200122
  Serious: Yes (Life-Threatening, Hospitalization, Disabling)
  Sender: FDA-Public Use
  Company Number: None

PATIENT
  Age: 60 Year
  Sex: Female
  Weight: 83.25 kg

DRUGS (1)
  1. AIMOVIG [Suspect]
     Active Substance: ERENUMAB-AOOE
     Indication: MIGRAINE
     Dosage: ?          QUANTITY:1 INJECTION(S);OTHER FREQUENCY:ONCE A MONTH;OTHER ROUTE:INJECTED INTO ARM THIGH OR STOMACH?
     Dates: start: 20190223, end: 20190623

REACTIONS (6)
  - Malaise [None]
  - Chest pain [None]
  - Bedridden [None]
  - Cerebrovascular accident [None]
  - Asthenia [None]
  - Neck pain [None]

NARRATIVE: CASE EVENT DATE: 20190223
